FAERS Safety Report 20822358 (Version 3)
Quarter: 2022Q2

REPORT INFORMATION
  Report Type: Spontaneous
  Country: US (occurrence: US)
  Receive Date: 20220512
  Receipt Date: 20220617
  Transmission Date: 20220721
  Serious: Yes (Hospitalization)
  Sender: FDA-Public Use
  Company Number: US-PFIZER INC-202200684556

PATIENT
  Age: 73 Year
  Sex: Female
  Weight: 74.83 kg

DRUGS (5)
  1. PAXLOVID [Suspect]
     Active Substance: NIRMATRELVIR\RITONAVIR
     Indication: COVID-19 treatment
     Dosage: 3 DF, 2X/DAY [PF-07321332 300 MG]/[RITONAVIR 100 MG]
     Route: 048
     Dates: start: 20220506, end: 20220510
  2. PAXLOVID [Suspect]
     Active Substance: NIRMATRELVIR\RITONAVIR
     Indication: Asthma
  3. BENADRYL [Concomitant]
     Active Substance: DIPHENHYDRAMINE HYDROCHLORIDE
     Indication: Hypersensitivity
     Dosage: 25 MG, 1X/DAY
     Dates: start: 2021
  4. BENADRYL [Concomitant]
     Active Substance: DIPHENHYDRAMINE HYDROCHLORIDE
     Indication: Asthma
  5. DULERA [Concomitant]
     Active Substance: FORMOTEROL FUMARATE DIHYDRATE\MOMETASONE FUROATE
     Indication: Asthma
     Dosage: UNK, 2X/DAY(100 MCG OVER 5 MCG ONE IN THE MORNING AND ONE SPRAY AT NIGHT)
     Dates: start: 2021

REACTIONS (4)
  - Taste disorder [Recovered/Resolved]
  - Dysgeusia [Recovered/Resolved]
  - Myalgia [Unknown]
  - Diarrhoea [Unknown]

NARRATIVE: CASE EVENT DATE: 20220506
